FAERS Safety Report 8523754-1 (Version None)
Quarter: 2012Q3

REPORT INFORMATION
  Report Type: 
  Country: None (occurrence: None)
  Receive Date: 20120720
  Receipt Date: 20120716
  Transmission Date: 20120928
  Serious: Yes (Hospitalization)
  Sender: FDA-Public Use
  Company Number: US-TEVA-348990USA

PATIENT
  Sex: Female

DRUGS (2)
  1. PROPOFOL [Suspect]
     Dosage: MAINTENANCE INFUSION OF 200 MICROG/KG/MIN; THEN WEANED AT AN INDIVIDUALISED RATE
     Route: 065
  2. PROPOFOL [Suspect]
     Indication: SEDATIVE THERAPY
     Dosage: BOLUS DOSE, FOLLOWED BY 1 MG/KG BOLUS DOSES AS REQUIRED; THEN MAINTENANCE INFUSION
     Route: 065

REACTIONS (4)
  - OXYGEN SATURATION DECREASED [None]
  - ASPIRATION [None]
  - COUGH [None]
  - CHEST X-RAY ABNORMAL [None]
